FAERS Safety Report 23095509 (Version 4)
Quarter: 2023Q4

REPORT INFORMATION
  Report Type: Spontaneous
  Country: DE (occurrence: DE)
  Receive Date: 20231023
  Receipt Date: 20231122
  Transmission Date: 20240110
  Serious: Yes (Hospitalization, Other)
  Sender: FDA-Public Use
  Company Number: None

PATIENT
  Sex: Male

DRUGS (3)
  1. EYLEA [Suspect]
     Active Substance: AFLIBERCEPT
     Indication: Neovascular age-related macular degeneration
     Dosage: EVERY 5 WEEKS, LEFT EYE, SOLUTION FOR INJECTION IN PRE-FILLED SYRINGE , 40 MG/ML
     Dates: start: 20201216
  2. EYLEA [Suspect]
     Active Substance: AFLIBERCEPT
     Dosage: LEFT EYE, SOLUTION FOR INJECTION IN PRE-FILLED SYRINGE, 40 MG/ML
     Dates: start: 20220629, end: 20220629
  3. EDOXABAN TOSYLATE [Concomitant]
     Active Substance: EDOXABAN TOSYLATE
     Indication: Product used for unknown indication
     Dosage: UNK

REACTIONS (8)
  - Product contamination microbial [Unknown]
  - Visual impairment [Unknown]
  - Blindness [Unknown]
  - Retinal detachment [Unknown]
  - Endophthalmitis [Unknown]
  - Endophthalmitis [Unknown]
  - Injection site pain [Unknown]
  - Visual acuity reduced [Unknown]

NARRATIVE: CASE EVENT DATE: 20220601
